FAERS Safety Report 10447365 (Version 2)
Quarter: 2024Q3

REPORT INFORMATION
  Report Type: Spontaneous
  Country: US (occurrence: US)
  Receive Date: 20140911
  Receipt Date: 20240814
  Transmission Date: 20241017
  Serious: No
  Sender: CSL BEHRING
  Company Number: US-BEH-2013037031

PATIENT
  Age: 17 Year
  Sex: Male
  Weight: 58.968 kg

DRUGS (1)
  1. ZEMAIRA [Suspect]
     Active Substance: .ALPHA.1-PROTEINASE INHIBITOR HUMAN
     Dosage: 5.1 ML PER MINUTE
     Route: 042

REACTIONS (4)
  - Epistaxis [Unknown]
  - Headache [Unknown]
  - Skin reaction [Unknown]
  - Off label use [Unknown]
